FAERS Safety Report 16409383 (Version 2)
Quarter: 2019Q2

REPORT INFORMATION
  Report Type: Spontaneous
  Country: US (occurrence: US)
  Receive Date: 20190610
  Receipt Date: 20190613
  Transmission Date: 20190711
  Serious: No
  Sender: FDA-Public Use
  Company Number: US-STRONGBRIDGE BIOPHARMA-2019-STR-000130

PATIENT
  Age: 43 Year
  Sex: Male

DRUGS (2)
  1. POTASSIUM [Concomitant]
     Active Substance: POTASSIUM
     Indication: BLOOD POTASSIUM DECREASED
     Dosage: UNK
  2. KEVEYIS [Suspect]
     Active Substance: DICHLORPHENAMIDE
     Indication: FAMILIAL PERIODIC PARALYSIS
     Dosage: 50 MG, BID
     Route: 048
     Dates: start: 20190515

REACTIONS (7)
  - Myalgia [Not Recovered/Not Resolved]
  - Disorientation [Recovering/Resolving]
  - Paraesthesia [Not Recovered/Not Resolved]
  - Condition aggravated [Unknown]
  - Blood potassium decreased [Not Recovered/Not Resolved]
  - Head discomfort [Recovering/Resolving]
  - Vision blurred [Recovering/Resolving]

NARRATIVE: CASE EVENT DATE: 20190523
